FAERS Safety Report 12487696 (Version 1)
Quarter: 2016Q2

REPORT INFORMATION
  Report Type: Spontaneous
  Country: FR (occurrence: FR)
  Receive Date: 20160622
  Receipt Date: 20160622
  Transmission Date: 20160815
  Serious: Yes (Hospitalization)
  Sender: FDA-Public Use
  Company Number: FR-ACCORD-041678

PATIENT
  Age: 59 Year
  Sex: Male

DRUGS (7)
  1. METHYLPREDNISOLONE MYLAN [Concomitant]
     Active Substance: METHYLPREDNISOLONE
     Indication: PREMEDICATION
  2. DEXCHLORPHENIRAMINE/DEXCHLORPHENIRAMINE MALEATE [Concomitant]
     Indication: PREMEDICATION
  3. FLUOROURACIL ACCORD [Suspect]
     Active Substance: FLUOROURACIL
     Indication: SQUAMOUS CELL CARCINOMA OF THE TONGUE
     Dosage: ONCE
     Route: 042
     Dates: start: 20160511, end: 20160514
  4. ERBITUX [Suspect]
     Active Substance: CETUXIMAB
     Indication: SQUAMOUS CELL CARCINOMA OF THE TONGUE
     Dosage: 400 MG/M2 CORRESPONDING TO 705 MG, THEN WEEKLY DOSES OF 250 MG/M2
     Dates: start: 20160510, end: 20160519
  5. ONDANSETRON ACCORD [Concomitant]
     Active Substance: ONDANSETRON
     Indication: PREMEDICATION
  6. RANITIDINE. [Concomitant]
     Active Substance: RANITIDINE
     Indication: PREMEDICATION
  7. CISPLATIN ACCORD [Suspect]
     Active Substance: CISPLATIN
     Indication: SQUAMOUS CELL CARCINOMA OF THE TONGUE
     Dates: start: 20160511

REACTIONS (4)
  - Arteriospasm coronary [Recovered/Resolved]
  - Chest pain [Recovered/Resolved]
  - Coma [Unknown]
  - Respiratory distress [Unknown]

NARRATIVE: CASE EVENT DATE: 20160511
